FAERS Safety Report 4662904-4 (Version None)
Quarter: 2005Q2

REPORT INFORMATION
  Report Type: 
  Country: None (occurrence: None)
  Receive Date: 20050502
  Receipt Date: 20050216
  Transmission Date: 20051028
  Serious: No
  Sender: FDA-Public Use
  Company Number: 200511227US

PATIENT
  Sex: Male

DRUGS (1)
  1. KETEK [Suspect]
     Indication: UPPER RESPIRATORY TRACT INFECTION
     Dosage: QD
     Dates: start: 20050213, end: 20050215

REACTIONS (1)
  - STOMACH DISCOMFORT [None]
